FAERS Safety Report 23108478 (Version 1)
Quarter: 2023Q4

REPORT INFORMATION
  Report Type: Spontaneous
  Country: US (occurrence: US)
  Receive Date: 20231026
  Receipt Date: 20231026
  Transmission Date: 20240109
  Serious: Yes (Hospitalization, Other)
  Sender: FDA-Public Use
  Company Number: US-MLMSERVICE-20231010-4590882-1

PATIENT
  Age: 5 Year
  Sex: Male

DRUGS (11)
  1. VANCOMYCIN [Suspect]
     Active Substance: VANCOMYCIN
     Indication: Product used for unknown indication
  2. VANCOMYCIN [Suspect]
     Active Substance: VANCOMYCIN
     Indication: Product used for unknown indication
     Dosage: 100 MG/L FOR 10 MINUTES, FLUSH FOR 2.5 MINUTES; THIS WAS REPEATED HOURLY AROUND THE CLOCK
  3. TOBRAMYCIN [Suspect]
     Active Substance: TOBRAMYCIN
     Indication: Product used for unknown indication
     Dosage: EACH 1 DROP EVERY 4 HOURS
  4. CEFTAZIDIME [Suspect]
     Active Substance: CEFTAZIDIME
     Indication: Product used for unknown indication
  5. FLUCONAZOLE [Suspect]
     Active Substance: FLUCONAZOLE
     Indication: Product used for unknown indication
     Route: 048
  6. AMPHOTERICIN B [Suspect]
     Active Substance: AMPHOTERICIN B
     Indication: Product used for unknown indication
     Dosage: TOPICAL INFUSIONS: AMPHOTERICINB 0.1%15 MINS,FLUSH 5 MIN. REPEATED HOURLY AROUND CLOCK
  7. GENTAMICIN [Suspect]
     Active Substance: GENTAMICIN
     Indication: Product used for unknown indication
     Dosage: 100 MG/L FOR 10 MINUTES, FLUSH FOR 5 MINUTES; THIS WAS REPEATED HOURLY AROUND THE CLOCK
     Route: 061
  8. MICONAZOLE [Suspect]
     Active Substance: MICONAZOLE
     Indication: Product used for unknown indication
     Route: 061
  9. VANCOMYCIN [Suspect]
     Active Substance: VANCOMYCIN
     Indication: Product used for unknown indication
  10. MICONAZOLE [Suspect]
     Active Substance: MICONAZOLE
     Indication: Product used for unknown indication
     Dosage: 1% FOR 10 MINUTES, FLUSH FOR 2.5 MINUTES; THIS WAS REPEATED HOURLY AROUND THE CLOCK
     Route: 061
  11. AMPHOTERICIN B [Suspect]
     Active Substance: AMPHOTERICIN B
     Indication: Product used for unknown indication
     Dosage: 1 (DRP) 4 HOUR

REACTIONS (3)
  - Infective corneal ulcer [Recovered/Resolved]
  - Infective keratitis [Recovered/Resolved]
  - Candida infection [Recovered/Resolved]
